FAERS Safety Report 9771345 (Version 1)
Quarter: 2013Q4

REPORT INFORMATION
  Report Type: Spontaneous
  Country: GB (occurrence: GB)
  Receive Date: 20131218
  Receipt Date: 20131218
  Transmission Date: 20140711
  Serious: Yes (Other)
  Sender: FDA-Public Use
  Company Number: GB-MYLANLABS-2013S1027596

PATIENT
  Age: 26 Year
  Sex: Female

DRUGS (1)
  1. MINOCYCLINE [Suspect]
     Indication: ACNE
     Route: 048
     Dates: start: 201201, end: 201204

REACTIONS (3)
  - Benign intracranial hypertension [Not Recovered/Not Resolved]
  - Visual field defect [Not Recovered/Not Resolved]
  - Hypermetropia [Not Recovered/Not Resolved]
